FAERS Safety Report 19658062 (Version 1)
Quarter: 2021Q3

REPORT INFORMATION
  Report Type: Spontaneous
  Country: DE (occurrence: DE)
  Receive Date: 20210805
  Receipt Date: 20210805
  Transmission Date: 20211014
  Serious: Yes (Hospitalization, Other)
  Sender: FDA-Public Use
  Company Number: DE-MACLEODS PHARMA UK LTD-MAC2021030549

PATIENT

DRUGS (14)
  1. PRAMIPEXOLE. [Suspect]
     Active Substance: PRAMIPEXOLE
     Indication: PARKINSON^S DISEASE
     Dosage: 0.525 MILLIGRAM, QD, PRAMIPEXOLE DIHYDROCHLORIDE
     Route: 065
  2. MIRTAZAPINE. [Suspect]
     Active Substance: MIRTAZAPINE
     Indication: INSOMNIA
     Dosage: UNK, TREATMENT TRIAL
     Route: 065
  3. PRAMIPEXOLE. [Suspect]
     Active Substance: PRAMIPEXOLE
     Dosage: UNK, PRAMIPEXOLE DIHYDROCHLORIDE, DOSE REDUCED
     Route: 065
  4. RASAGLINE 1MG [Interacting]
     Active Substance: RASAGILINE
     Indication: DEPRESSIVE SYMPTOM
  5. AGOMELATINE [Suspect]
     Active Substance: AGOMELATINE
     Indication: HYPERTENSION
     Dosage: 50 MILLIGRAM, QD
     Route: 065
  6. TRAZODONE HYDROCHLORIDE. [Suspect]
     Active Substance: TRAZODONE HYDROCHLORIDE
     Indication: INSOMNIA
     Dosage: UNK
     Route: 065
  7. RANOLAZINE. [Interacting]
     Active Substance: RANOLAZINE
     Indication: HYPERTENSION
     Dosage: UNK
     Route: 065
  8. RASAGLINE 1MG [Interacting]
     Active Substance: RASAGILINE
     Indication: PARKINSON^S DISEASE
     Dosage: 1 MILLIGRAM, QD
     Route: 065
  9. AGOMELATINE [Suspect]
     Active Substance: AGOMELATINE
     Indication: INSOMNIA
  10. MOCLOBEMIDE [Interacting]
     Active Substance: MOCLOBEMIDE
     Indication: DEPRESSIVE SYMPTOM
     Dosage: 150 MILLIGRAM, QD
     Route: 065
  11. LEVODOPA/BENSERAZIDE [Suspect]
     Active Substance: BENSERAZIDE\LEVODOPA
     Indication: PARKINSON^S DISEASE
     Dosage: 1 DOSAGE FORM, QD
     Route: 065
  12. L?THYROXINE [Concomitant]
     Active Substance: LEVOTHYROXINE
     Indication: HYPOTHYROIDISM
     Dosage: 100 MICROGRAM, QD
     Route: 065
  13. MOCLOBEMIDE [Interacting]
     Active Substance: MOCLOBEMIDE
     Indication: PARKINSON^S DISEASE
     Dosage: 450 MILLIGRAM, QD, THE CURRENT DOSE ; DOSE INCREASED ABOUT 1 YEAR PRIOR TO ADMISSION
     Route: 065
  14. RANOLAZINE. [Interacting]
     Active Substance: RANOLAZINE
     Dosage: 375 MILLIGRAM, QD
     Route: 065

REACTIONS (8)
  - Drug level increased [Recovered/Resolved]
  - Off label use [Unknown]
  - Drug ineffective for unapproved indication [Unknown]
  - Serum serotonin increased [Recovered/Resolved]
  - Serotonin syndrome [Recovered/Resolved]
  - Autonomic nervous system imbalance [Recovered/Resolved]
  - Potentiating drug interaction [Recovered/Resolved]
  - Condition aggravated [Recovered/Resolved]
